FAERS Safety Report 22398139 (Version 1)
Quarter: 2023Q2

REPORT INFORMATION
  Report Type: Spontaneous
  Country: GB (occurrence: GB)
  Receive Date: 20230602
  Receipt Date: 20230602
  Transmission Date: 20230721
  Serious: Yes (Hospitalization)
  Sender: FDA-Public Use
  Company Number: GB-MHRA-MED-202305241141361780-HKLQJ

PATIENT
  Age: 35 Year
  Sex: Female

DRUGS (2)
  1. DICLOFENAC [Suspect]
     Active Substance: DICLOFENAC
     Indication: Adverse drug reaction
     Route: 065
     Dates: start: 20230516
  2. DICLOFENAC [Suspect]
     Active Substance: DICLOFENAC
     Indication: Endometriosis

REACTIONS (1)
  - Rectal haemorrhage [Recovering/Resolving]

NARRATIVE: CASE EVENT DATE: 20230517
